FAERS Safety Report 9565162 (Version 1)
Quarter: 2013Q3

REPORT INFORMATION
  Report Type: Report from Study
  Country: US (occurrence: US)
  Receive Date: 20130930
  Receipt Date: 20130930
  Transmission Date: 20140515
  Serious: Yes (Death, Other)
  Sender: FDA-Public Use
  Company Number: US-PFIZER INC-2013275302

PATIENT
  Age: 35 Year
  Sex: Male

DRUGS (3)
  1. DIAZEPAM [Suspect]
     Dosage: UNK
  2. DOXEPIN HCL [Suspect]
     Dosage: UNK
  3. NORDAZEPAM [Suspect]

REACTIONS (2)
  - Overdose [Fatal]
  - Pulmonary oedema [Unknown]
